FAERS Safety Report 6675592-2 (Version None)
Quarter: 2010Q2

REPORT INFORMATION
  Report Type: 
  Country: None (occurrence: None)
  Receive Date: 20100409
  Receipt Date: 20100401
  Transmission Date: 20101027
  Serious: Yes (Other)
  Sender: FDA-Public Use
  Company Number: PHHY2010US17809

PATIENT
  Sex: Female

DRUGS (3)
  1. VALTURNA [Suspect]
     Dosage: 150/160 MG PER DAY
     Dates: start: 20100318
  2. NIACIN [Concomitant]
  3. FISH OIL [Concomitant]

REACTIONS (4)
  - BLOOD PRESSURE FLUCTUATION [None]
  - BLOOD PRESSURE INADEQUATELY CONTROLLED [None]
  - BLOOD PRESSURE INCREASED [None]
  - DRUG INEFFECTIVE [None]
